FAERS Safety Report 19290159 (Version 1)
Quarter: 2021Q2

REPORT INFORMATION
  Report Type: Spontaneous
  Country: US (occurrence: US)
  Receive Date: 20210521
  Receipt Date: 20210521
  Transmission Date: 20210717
  Serious: No
  Sender: FDA-Public Use
  Company Number: US-RADIUS HEALTH INC.-2021US000004

PATIENT
  Sex: Female

DRUGS (1)
  1. TYMLOS [Suspect]
     Active Substance: ABALOPARATIDE
     Indication: OSTEOPOROSIS
     Dosage: 80 MCG DAILY
     Route: 058
     Dates: start: 202006

REACTIONS (8)
  - Confusional state [Unknown]
  - Headache [Unknown]
  - Myalgia [Unknown]
  - Bone pain [Unknown]
  - Memory impairment [Unknown]
  - Dysstasia [Unknown]
  - Product dose omission issue [Unknown]
  - Back pain [Unknown]
